FAERS Safety Report 8962298 (Version 1)
Quarter: 2012Q4

REPORT INFORMATION
  Report Type: Spontaneous
  Country: US (occurrence: None)
  Receive Date: 20121204
  Receipt Date: 20121204
  Transmission Date: 20130627
  Serious: No
  Sender: FDA-Public Use
  Company Number: 2012-00190

PATIENT
  Age: 29 Year
  Sex: Female
  Weight: 61.24 kg

DRUGS (1)
  1. ZICAM INTENSE SINUS RELIEF NASAL GEL [Suspect]
     Indication: RESPIRATORY TRACT CONGESTION
     Dosage: used in each nostril 1-2 times
     Dates: start: 20121124

REACTIONS (1)
  - Anosmia [None]
